FAERS Safety Report 19504459 (Version 1)
Quarter: 2021Q3

REPORT INFORMATION
  Report Type: Spontaneous
  Country: US (occurrence: US)
  Receive Date: 20210707
  Receipt Date: 20210707
  Transmission Date: 20211014
  Serious: No
  Sender: FDA-Public Use
  Company Number: None

PATIENT
  Age: 64 Year
  Sex: Male
  Weight: 125 kg

DRUGS (1)
  1. ZOLEDRONIC (ZOLEDRONIC ACID 4MG/BAG INJ,100ML) [Suspect]
     Active Substance: ZOLEDRONIC ACID
     Indication: PAIN
     Dosage: ?          OTHER FREQUENCY:IV;?
     Route: 042
     Dates: start: 20160808, end: 20210521

REACTIONS (1)
  - Osteonecrosis of jaw [None]

NARRATIVE: CASE EVENT DATE: 20210322
